FAERS Safety Report 9551356 (Version 1)
Quarter: 2013Q3

REPORT INFORMATION
  Report Type: Spontaneous
  Country: US (occurrence: None)
  Receive Date: 20130724
  Receipt Date: 20130724
  Transmission Date: 20140515
  Serious: Yes (Other)
  Sender: FDA-Public Use
  Company Number: PHEH2012US011893

PATIENT
  Age: 78 Year
  Sex: Male

DRUGS (1)
  1. GLEEVEC [Suspect]
     Route: 048
     Dates: start: 201205

REACTIONS (5)
  - Gastrointestinal stromal tumour [None]
  - Nausea [None]
  - Vomiting [None]
  - Chest pain [None]
  - Neoplasm recurrence [None]
